FAERS Safety Report 21434666 (Version 1)
Quarter: 2022Q4

REPORT INFORMATION
  Report Type: Spontaneous
  Country: US (occurrence: US)
  Receive Date: 20221010
  Receipt Date: 20221010
  Transmission Date: 20230113
  Serious: Yes (Hospitalization, Other)
  Sender: FDA-Public Use
  Company Number: US-009507513-1212USA008181

PATIENT
  Sex: Female
  Weight: 76.644 kg

DRUGS (4)
  1. FOSAMAX [Suspect]
     Active Substance: ALENDRONATE SODIUM
     Indication: Osteoporosis
     Dosage: 70 MG, UNK
     Route: 048
     Dates: start: 2001, end: 2004
  2. FOSAMAX [Suspect]
     Active Substance: ALENDRONATE SODIUM
     Indication: Osteopenia
  3. BENADRYL [Concomitant]
     Active Substance: DIPHENHYDRAMINE HYDROCHLORIDE
     Indication: Idiopathic urticaria
     Dosage: UNK
  4. ACTONEL [Concomitant]
     Active Substance: RISEDRONATE SODIUM
     Dosage: 35 MILLIGRAM WEEKLY
     Dates: start: 2004

REACTIONS (40)
  - Intramedullary rod insertion [Unknown]
  - Shoulder operation [Unknown]
  - Rotator cuff repair [Unknown]
  - Basal cell carcinoma [Unknown]
  - Hypothyroidism [Not Recovered/Not Resolved]
  - Nephrolithiasis [Unknown]
  - Keratomileusis [Unknown]
  - Neuropathy peripheral [Unknown]
  - Femur fracture [Unknown]
  - Femur fracture [Unknown]
  - Femur fracture [Unknown]
  - Adverse event [Unknown]
  - Upper respiratory tract infection [Recovered/Resolved]
  - Sinusitis [Recovered/Resolved]
  - Hypercholesterolaemia [Unknown]
  - Weight increased [Unknown]
  - Fatigue [Unknown]
  - Varicose vein [Unknown]
  - Nonspecific reaction [Recovered/Resolved]
  - Fall [Unknown]
  - Lumbar spinal stenosis [Unknown]
  - Sciatica [Unknown]
  - Sensory loss [Unknown]
  - Depression [Unknown]
  - Osteoarthritis [Unknown]
  - Fall [Unknown]
  - Iliotibial band syndrome [Unknown]
  - Radiculopathy [Not Recovered/Not Resolved]
  - Extraskeletal ossification [Unknown]
  - Osteoarthritis [Unknown]
  - Greater trochanteric pain syndrome [Unknown]
  - Tendon disorder [Unknown]
  - Intervertebral disc degeneration [Unknown]
  - Joint effusion [Unknown]
  - Osteosclerosis [Unknown]
  - Drug ineffective [Unknown]
  - Lesion excision [Unknown]
  - Back pain [Recovering/Resolving]
  - Arthralgia [Unknown]
  - Arthralgia [Unknown]

NARRATIVE: CASE EVENT DATE: 20010101
